FAERS Safety Report 9933911 (Version 2)
Quarter: 2014Q1

REPORT INFORMATION
  Report Type: Report from Study
  Country: US (occurrence: US)
  Receive Date: 20140228
  Receipt Date: 20140228
  Transmission Date: 20141002
  Serious: No
  Sender: FDA-Public Use
  Company Number: US-MYLANLABS-2013S1019417

PATIENT
  Age: 46 Year
  Sex: Male
  Weight: 72.58 kg

DRUGS (3)
  1. AMNESTEEM CAPSULES [Suspect]
     Indication: ACNE CYSTIC
     Route: 048
     Dates: start: 20130604, end: 201307
  2. AMNESTEEM CAPSULES [Suspect]
     Indication: SCAR
     Route: 048
     Dates: start: 20130604, end: 201307
  3. SPORANOX [Concomitant]
     Dosage: X1 WEEK EACH MONTH FOR 3 MONTHS
     Dates: start: 20130711

REACTIONS (5)
  - Cellulitis [Recovered/Resolved]
  - Erysipelas [Recovered/Resolved]
  - Nasal abscess [Recovered/Resolved]
  - Staphylococcal infection [Recovered/Resolved]
  - Dry skin [Recovered/Resolved]
